FAERS Safety Report 14636149 (Version 1)
Quarter: 2018Q1

REPORT INFORMATION
  Report Type: Not Available
  Country: US (occurrence: US)
  Receive Date: 20180314
  Receipt Date: 20180314
  Transmission Date: 20180509
  Serious: No
  Sender: FDA-Public Use
  Company Number: US-FOUNDATIONCONSUMERHC-2018-US-000840

PATIENT
  Age: 23 Year
  Sex: Female
  Weight: 49.9 kg

DRUGS (1)
  1. PLAN B ONE-STEP [Suspect]
     Active Substance: LEVONORGESTREL
     Dosage: 1.5 MG TABLET X1 DOSE
     Route: 048
     Dates: start: 20180111, end: 20180111

REACTIONS (4)
  - Micturition urgency [Unknown]
  - Abdominal pain [Recovering/Resolving]
  - Pollakiuria [Unknown]
  - Dysuria [Unknown]

NARRATIVE: CASE EVENT DATE: 20180115
